FAERS Safety Report 9184561 (Version 1)
Quarter: 2012Q4

REPORT INFORMATION
  Report Type: 
  Country: ZA (occurrence: ZA)
  Receive Date: 20121031
  Receipt Date: 20121031
  Transmission Date: 20130627
  Serious: Yes (Death, Congenital Anomaly)
  Sender: FDA-Public Use
  Company Number: ZA-JNJFOC-20121016345

PATIENT

DRUGS (1)
  1. VERMOX [Suspect]
     Indication: FOETAL EXPOSURE DURING PREGNANCY
     Route: 064
     Dates: start: 200409, end: 200409

REACTIONS (1)
  - Foetal chromosome abnormality [Fatal]
